FAERS Safety Report 5275832-0 (Version None)
Quarter: 2007Q1

REPORT INFORMATION
  Report Type: 
  Country: None (occurrence: None)
  Receive Date: 20061213
  Receipt Date: 20041202
  Transmission Date: 20070707
  Serious: No
  Sender: FDA-Public Use
  Company Number: 2004UW24711

PATIENT
  Age: 84 Year
  Sex: Male
  Weight: 99.79 kg

DRUGS (5)
  1. SEROQUEL [Suspect]
     Indication: BIPOLAR DISORDER
     Dosage: 150 MG QD PO
     Route: 048
     Dates: start: 20041101
  2. PROVIGIL [Concomitant]
  3. PROTONIX [Concomitant]
  4. NAMENDA [Concomitant]
  5. PAXIL [Concomitant]

REACTIONS (2)
  - ABNORMAL BEHAVIOUR [None]
  - TARDIVE DYSKINESIA [None]
